FAERS Safety Report 20958314 (Version 2)
Quarter: 2022Q2

REPORT INFORMATION
  Report Type: Spontaneous
  Country: CN (occurrence: CN)
  Receive Date: 20220614
  Receipt Date: 20220616
  Transmission Date: 20220721
  Serious: Yes (Life-Threatening, Other)
  Sender: FDA-Public Use
  Company Number: CN-PFIZER INC-PV202200000308

PATIENT
  Age: 51 Year
  Sex: Female
  Weight: 67.8 kg

DRUGS (9)
  1. CYTARABINE [Suspect]
     Active Substance: CYTARABINE
     Indication: Acute myeloid leukaemia
     Dosage: 100.000 MG, 1X/DAY
     Route: 041
     Dates: start: 20220522, end: 20220523
  2. CYTARABINE [Suspect]
     Active Substance: CYTARABINE
     Dosage: 30.000 MG, 1X/DAY
     Route: 058
     Dates: start: 20220524, end: 20220601
  3. IDARUBICIN HYDROCHLORIDE [Suspect]
     Active Substance: IDARUBICIN HYDROCHLORIDE
     Indication: Acute myeloid leukaemia
     Dosage: 10.000 MG, 1X/DAY
     Route: 042
     Dates: start: 20220522, end: 20220523
  4. IDARUBICIN HYDROCHLORIDE [Suspect]
     Active Substance: IDARUBICIN HYDROCHLORIDE
     Indication: Acute myeloid leukaemia
     Dosage: 5.000 MG, ALTERNATE DAY
     Route: 042
     Dates: start: 20220525, end: 20220527
  5. VENCLEXTA [Suspect]
     Active Substance: VENETOCLAX
     Indication: Acute myeloid leukaemia
     Dosage: 100.000 MG, 1X/DAY
     Route: 048
     Dates: start: 20220522, end: 20220602
  6. SODIUM CHLORIDE [Concomitant]
     Active Substance: SODIUM CHLORIDE
     Indication: Vehicle solution use
     Dosage: 500.000 ML, 1X/DAY
     Route: 041
     Dates: start: 20220522, end: 20220523
  7. SODIUM CHLORIDE [Concomitant]
     Active Substance: SODIUM CHLORIDE
     Dosage: 4.000 ML, 1X/DAY
     Route: 058
     Dates: start: 20220524
  8. STERILE WATER [Concomitant]
     Active Substance: WATER
     Indication: Vehicle solution use
     Dosage: 40.000 ML, 1X/DAY
     Route: 042
     Dates: start: 20220522, end: 20220523
  9. STERILE WATER [Concomitant]
     Active Substance: WATER
     Dosage: 40.000 ML, 1X/DAY
     Route: 042
     Dates: start: 20220525, end: 20220527

REACTIONS (1)
  - Myelosuppression [Not Recovered/Not Resolved]

NARRATIVE: CASE EVENT DATE: 20220527
